FAERS Safety Report 12207798 (Version 1)
Quarter: 2016Q1

REPORT INFORMATION
  Report Type: Spontaneous
  Country: CH (occurrence: CH)
  Receive Date: 20160324
  Receipt Date: 20160324
  Transmission Date: 20160526
  Serious: Yes (Other)
  Sender: FDA-Public Use
  Company Number: CH-LPDUSPRD-20160248

PATIENT
  Age: 45 Year
  Sex: Female

DRUGS (4)
  1. TAVEGYL [Concomitant]
     Active Substance: CLEMASTINE FUMARATE
     Dosage: ONE AMPOULE BEFORE FERINJECT
     Route: 042
     Dates: start: 20151126, end: 20151126
  2. FERINJECT [Suspect]
     Active Substance: FERRIC CARBOXYMALTOSE
     Dosage: 500 MG
     Route: 041
     Dates: start: 20151126, end: 20151126
  3. VENLAFLAXIN RETARD [Concomitant]
     Dosage: 75 MG FOR 3 MONTHS
     Route: 048
  4. ZOLPIDEM [Concomitant]
     Active Substance: ZOLPIDEM\ZOLPIDEM TARTRATE
     Dosage: 10 MG HS FOR 3 MONTHS
     Route: 065

REACTIONS (1)
  - Oral lichen planus [Unknown]

NARRATIVE: CASE EVENT DATE: 20151127
